FAERS Safety Report 7647931-7 (Version None)
Quarter: 2011Q3

REPORT INFORMATION
  Report Type: 
  Country: None (occurrence: None)
  Receive Date: 20110801
  Receipt Date: 20110727
  Transmission Date: 20111222
  Serious: Yes (Other)
  Sender: FDA-Public Use
  Company Number: TR-PFIZER INC-2011170737

PATIENT
  Age: 40 Year
  Sex: Female

DRUGS (2)
  1. METPAMID [Concomitant]
     Dosage: UNK
     Dates: start: 20090708
  2. CEFOPERAZONE SODIUM [Suspect]
     Dosage: 6 G, 2X/DAY
     Route: 042
     Dates: start: 20090708, end: 20090709

REACTIONS (1)
  - MUCOSAL INFLAMMATION [None]
